FAERS Safety Report 24048467 (Version 2)
Quarter: 2024Q3

REPORT INFORMATION
  Report Type: Report from Study
  Country: TR (occurrence: TR)
  Receive Date: 20240704
  Receipt Date: 20240720
  Transmission Date: 20241017
  Serious: Yes (Death, Other)
  Sender: ABBVIE
  Company Number: TR-ABBVIE-5823818

PATIENT
  Age: 57 Year
  Sex: Male
  Weight: 75 kg

DRUGS (4)
  1. CARBIDOPA\LEVODOPA [Suspect]
     Active Substance: CARBIDOPA\LEVODOPA
     Indication: Parkinson^s disease
     Dosage: MORNING DOSE (ML): 9.00 CONTINIOUS DOSE (ML): 3.00 EXTRA DOSE (ML): 1.00
     Route: 050
     Dates: start: 20240312
  2. CARBIDOPA\LEVODOPA [Suspect]
     Active Substance: CARBIDOPA\LEVODOPA
  3. SULINEX XR [Concomitant]
     Indication: Sleep disorder
     Dosage: FORM STRENGTH: 75 MILLIGRAM
     Route: 048
  4. DESYREL [Concomitant]
     Active Substance: TRAZODONE HYDROCHLORIDE
     Indication: Sleep disorder
     Dosage: FORM STRENGTH: 100 MILLIGRAM
     Route: 048

REACTIONS (1)
  - Completed suicide [Fatal]

NARRATIVE: CASE EVENT DATE: 20240625
